FAERS Safety Report 13756135 (Version 3)
Quarter: 2017Q3

REPORT INFORMATION
  Report Type: Spontaneous
  Country: DE (occurrence: DE)
  Receive Date: 20170714
  Receipt Date: 20170925
  Transmission Date: 20171127
  Serious: Yes (Life-Threatening, Other)
  Sender: FDA-Public Use
  Company Number: DE-WEST-WARD PHARMACEUTICALS CORP.-DE-H14001-17-02454

PATIENT
  Age: 66 Year
  Sex: Male
  Weight: 74 kg

DRUGS (3)
  1. MSI [Concomitant]
     Active Substance: MORPHINE SULFATE
     Indication: IMPLANTABLE DEFIBRILLATOR REPLACEMENT
     Route: 042
  2. DORMICUM (MIDAZOLAM MALEATE) [Concomitant]
     Active Substance: MIDAZOLAM MALEATE
     Indication: IMPLANTABLE DEFIBRILLATOR REPLACEMENT
     Route: 042
  3. CEFUROXIME. [Suspect]
     Active Substance: CEFUROXIME
     Indication: INFECTION PROPHYLAXIS
     Route: 042

REACTIONS (4)
  - Blood pressure decreased [Recovered/Resolved]
  - Arrhythmia [Recovered/Resolved]
  - Anaphylactic shock [Recovered/Resolved]
  - Hyperhidrosis [Recovered/Resolved]

NARRATIVE: CASE EVENT DATE: 2017
